FAERS Safety Report 12625240 (Version 1)
Quarter: 2016Q3

REPORT INFORMATION
  Report Type: Spontaneous
  Country: US (occurrence: US)
  Receive Date: 20160805
  Receipt Date: 20160805
  Transmission Date: 20161109
  Serious: Yes (Life-Threatening, Other)
  Sender: FDA-Public Use
  Company Number: US-SUN PHARMACEUTICAL INDUSTRIES LTD-2016US-121643

PATIENT
  Age: 58 Year
  Sex: Female

DRUGS (2)
  1. RAMUCIRUMAB [Suspect]
     Active Substance: RAMUCIRUMAB
     Indication: RENAL MASS
     Dosage: CYCLICAL
     Route: 065
  2. DOCETAXEL. [Suspect]
     Active Substance: DOCETAXEL
     Indication: RENAL MASS
     Dosage: CYCLICAL
     Route: 065

REACTIONS (1)
  - Drug ineffective [Not Recovered/Not Resolved]
